FAERS Safety Report 25075700 (Version 1)
Quarter: 2025Q1

REPORT INFORMATION
  Report Type: Spontaneous
  Country: GB (occurrence: GB)
  Receive Date: 20250313
  Receipt Date: 20250313
  Transmission Date: 20250409
  Serious: Yes (Life-Threatening, Hospitalization, Disabling, Other)
  Sender: BAYER HEALTHCARE PHARMACEUTICALS INC.
  Company Number: None

PATIENT
  Sex: Female

DRUGS (3)
  1. MIRENA [Suspect]
     Active Substance: LEVONORGESTREL
     Indication: Contraception
     Dosage: 20?G/DAY
     Route: 015
     Dates: start: 20230306
  2. MIRENA [Suspect]
     Active Substance: LEVONORGESTREL
     Indication: Cardiovascular disorder
  3. PROGESTERONE [Suspect]
     Active Substance: PROGESTERONE
     Indication: Contraception
     Route: 048
     Dates: start: 201708

REACTIONS (2)
  - Aortic dissection rupture [Recovered/Resolved with Sequelae]
  - Aortic aneurysm [Unknown]

NARRATIVE: CASE EVENT DATE: 20240215
